FAERS Safety Report 25664461 (Version 1)
Quarter: 2025Q3

REPORT INFORMATION
  Report Type: Spontaneous
  Country: US (occurrence: US)
  Receive Date: 20250811
  Receipt Date: 20250811
  Transmission Date: 20251021
  Serious: No
  Sender: VERTEX
  Company Number: US-VERTEX PHARMACEUTICALS DOOEL SKOPJE-2025-013066

PATIENT
  Age: 44 Year
  Sex: Female

DRUGS (2)
  1. TRIKAFTA [Suspect]
     Active Substance: ELEXACAFTOR\IVACAFTOR\TEZACAFTOR
     Indication: Cystic fibrosis
     Dosage: 2 ORANGE TABLETS IN AM, 1 BLUE TAB IN PM
     Route: 048
     Dates: start: 202412
  2. AZTREONAM LYSINE [Suspect]
     Active Substance: AZTREONAM LYSINE
     Indication: Cystic fibrosis
     Dosage: 75 MG; 3 TIMES A DAY FOR 28DAYS ON AND 28 DAYS OFF
     Dates: start: 202412

REACTIONS (3)
  - Fatigue [Unknown]
  - Brain fog [Unknown]
  - Arthralgia [Unknown]
